FAERS Safety Report 6951303-8 (Version None)
Quarter: 2010Q3

REPORT INFORMATION
  Report Type: 
  Country: None (occurrence: None)
  Receive Date: 20100828
  Receipt Date: 20100316
  Transmission Date: 20110219
  Serious: No
  Sender: FDA-Public Use
  Company Number: US-ABBOTT-10P-163-0633977-00

PATIENT
  Sex: Male
  Weight: 83.99 kg

DRUGS (8)
  1. NIASPAN [Suspect]
     Indication: BLOOD TRIGLYCERIDES INCREASED
     Dates: start: 20100101
  2. PLAVIX [Concomitant]
     Indication: CORONARY ARTERIAL STENT INSERTION
  3. PREDNISONE [Concomitant]
     Indication: PRODUCT USED FOR UNKNOWN INDICATION
  4. UNKNOWN BLOOD PRESSURE MEDICATION [Concomitant]
     Indication: HYPERTENSION
  5. UNKNOWN GOUT MEDICATION [Concomitant]
     Indication: GOUT
  6. UNKNOWN DIURETIC [Concomitant]
     Indication: PRODUCT USED FOR UNKNOWN INDICATION
  7. X-FORGE [Concomitant]
     Indication: PRODUCT USED FOR UNKNOWN INDICATION
  8. FLOMAX [Concomitant]
     Indication: PRODUCT USED FOR UNKNOWN INDICATION

REACTIONS (1)
  - FLUSHING [None]
